FAERS Safety Report 5022851-5 (Version None)
Quarter: 2006Q2

REPORT INFORMATION
  Report Type: 
  Country: None (occurrence: None)
  Receive Date: 20060426
  Receipt Date: 20060322
  Transmission Date: 20061013
  Serious: Yes (Other)
  Sender: FDA-Public Use
  Company Number: 2006041230

PATIENT
  Age: 63 Year
  Sex: Male
  Weight: 104.3273 kg

DRUGS (14)
  1. LYRICA [Suspect]
     Indication: PARAESTHESIA
     Dosage: 150 MG (75 MG,2 IN 1 D)
     Dates: start: 20060321
  2. IBUPROFEN [Suspect]
     Indication: PAIN
  3. AVANDIA [Concomitant]
  4. GLUCOPHAGE [Concomitant]
  5. STARLIX [Concomitant]
  6. LOTENSIN [Concomitant]
  7. ZOCOR [Concomitant]
  8. VALSARTAN [Concomitant]
  9. NORVASC [Concomitant]
  10. TAMSULOSIN HCL [Concomitant]
  11. MAGNESIUM CITRATE (MAGNESIUM CITRATE) [Concomitant]
  12. PSYLLIUM (PSYLLIUM) [Concomitant]
  13. ASPIRIN [Concomitant]
  14. VITAMINS WITH MINERALS (VITAMINS WITH MINERALS) [Concomitant]

REACTIONS (5)
  - FEELING ABNORMAL [None]
  - FEELING DRUNK [None]
  - HANGOVER [None]
  - PAIN [None]
  - THIRST [None]
